FAERS Safety Report 4703192-X (Version None)
Quarter: 2005Q2

REPORT INFORMATION
  Report Type: 
  Country: None (occurrence: None)
  Receive Date: 20050629
  Receipt Date: 20050513
  Transmission Date: 20051028
  Serious: Yes (Disabling, Other)
  Sender: FDA-Public Use
  Company Number: PHFR2005GB01805

PATIENT
  Age: 60 Year
  Sex: Female

DRUGS (6)
  1. ZOMETA [Suspect]
     Indication: METASTASES TO BONE
     Dosage: 4MG/MONTH
     Route: 042
  2. VINORELBINE [Concomitant]
     Dosage: 40MG/DAY
     Route: 042
     Dates: start: 20050309
  3. MORPHINE [Concomitant]
     Indication: PAIN
     Route: 048
  4. CALCICHEW-D3 [Concomitant]
     Route: 048
  5. DICLOFENAC SODIUM [Concomitant]
     Indication: PAIN
  6. LANSOPRAZOLE [Concomitant]
     Indication: DYSPEPSIA
     Dosage: 15MG/DAY
     Route: 048

REACTIONS (7)
  - ASEPTIC NECROSIS BONE [None]
  - DYSGEUSIA [None]
  - METASTASES TO BONE [None]
  - OEDEMA MOUTH [None]
  - ORAL DISCHARGE [None]
  - ORAL PAIN [None]
  - OSTEOMYELITIS [None]
